FAERS Safety Report 4403555-6 (Version None)
Quarter: 2004Q3

REPORT INFORMATION
  Report Type: 
  Country: None (occurrence: None)
  Receive Date: 20040719
  Receipt Date: 20040707
  Transmission Date: 20050211
  Serious: Yes (Death)
  Sender: FDA-Public Use
  Company Number: 163-20785-04040667 (0)

PATIENT
  Age: 66 Year
  Sex: Female

DRUGS (6)
  1. THALOMID [Suspect]
     Indication: MULTIPLE MYELOMA
     Dosage: 400 MG, DAILY, ORAL
     Route: 048
     Dates: start: 20030717, end: 20030721
  2. DEXAMETHASONE [Suspect]
     Indication: MULTIPLE MYELOMA
     Dates: start: 20030101, end: 20030101
  3. CISPLATIN [Suspect]
     Indication: MULTIPLE MYELOMA
     Dates: start: 20030101, end: 20030101
  4. ADRIAMYCIN PFS [Suspect]
     Indication: MULTIPLE MYELOMA
     Dates: start: 20030101, end: 20030101
  5. CYTOXAN [Suspect]
     Indication: MULTIPLE MYELOMA
     Dates: start: 20030101, end: 20030101
  6. ETOPOSIDE [Suspect]
     Indication: MULTIPLE MYELOMA
     Dates: start: 20030101, end: 20030101

REACTIONS (2)
  - CEREBRAL HAEMORRHAGE [None]
  - PLATELET DISORDER [None]
